FAERS Safety Report 11913119 (Version 1)
Quarter: 2016Q1

REPORT INFORMATION
  Report Type: Spontaneous
  Country: FR (occurrence: FR)
  Receive Date: 20160113
  Receipt Date: 20160113
  Transmission Date: 20160526
  Serious: Yes (Hospitalization, Congenital Anomaly, Other)
  Sender: FDA-Public Use
  Company Number: FR-BRISTOL-MYERS SQUIBB COMPANY-11707023

PATIENT
  Age: 0 Day
  Sex: Female
  Weight: 3.8 kg

DRUGS (5)
  1. VIDEX [Suspect]
     Active Substance: DIDANOSINE
     Indication: PRODUCT USED FOR UNKNOWN INDICATION
     Dosage: 250 MG, QD
     Route: 064
  2. ZERIT [Suspect]
     Active Substance: STAVUDINE
     Indication: PROPHYLAXIS AGAINST HIV INFECTION
     Dosage: 3 MG, QD
     Route: 048
  3. VIRACEPT [Suspect]
     Active Substance: NELFINAVIR MESYLATE
     Indication: PRODUCT USED FOR UNKNOWN INDICATION
     Dosage: 250 MG, BID
     Route: 064
  4. ZERIT [Suspect]
     Active Substance: STAVUDINE
     Indication: PRODUCT USED FOR UNKNOWN INDICATION
     Dosage: 30 MG, BID
     Route: 064
  5. RETROVIR [Suspect]
     Active Substance: ZIDOVUDINE
     Indication: PRODUCT USED FOR UNKNOWN INDICATION
     Dosage: UNK
     Route: 064

REACTIONS (11)
  - Blood lactic acid increased [Recovered/Resolved]
  - Blood lactate dehydrogenase increased [Recovered/Resolved]
  - Congenital cystic kidney disease [Recovered/Resolved]
  - Macrocytosis [Recovered/Resolved]
  - Hypertriglyceridaemia [Recovered/Resolved]
  - Neutropenia [Recovered/Resolved]
  - Foetal exposure during pregnancy [Recovered/Resolved]
  - Arthropathy [Recovered/Resolved]
  - Renal dysplasia [Recovered/Resolved]
  - Chondromatosis [Recovered/Resolved]
  - Blood pyruvic acid increased [Recovered/Resolved]

NARRATIVE: CASE EVENT DATE: 20010608
